FAERS Safety Report 9859419 (Version 2)
Quarter: 2014Q1

REPORT INFORMATION
  Report Type: Spontaneous
  Country: US (occurrence: US)
  Receive Date: 20140131
  Receipt Date: 20140204
  Transmission Date: 20141002
  Serious: Yes (Death, Hospitalization, Other)
  Sender: FDA-Public Use
  Company Number: US-009507513-1401USA014778

PATIENT
  Sex: Female
  Weight: 70.75 kg

DRUGS (5)
  1. JANUVIA [Suspect]
     Indication: TYPE 2 DIABETES MELLITUS
     Dosage: UNK
     Route: 048
     Dates: start: 200701, end: 20111223
  2. JANUMET [Suspect]
     Indication: TYPE 2 DIABETES MELLITUS
     Dosage: UNK
     Route: 048
     Dates: start: 2007, end: 201112
  3. BYETTA [Suspect]
     Dosage: UNK
     Dates: start: 200701, end: 201112
  4. VICTOZA [Suspect]
     Dosage: UNK
     Dates: start: 200701, end: 201112
  5. BYDUREON [Suspect]
     Dosage: UNK
     Dates: start: 200701, end: 201112

REACTIONS (28)
  - Adenocarcinoma pancreas [Unknown]
  - Squamous cell carcinoma of lung [Unknown]
  - Lymphadenopathy mediastinal [Unknown]
  - Failure to thrive [Unknown]
  - Pneumonia [Unknown]
  - Acute respiratory failure [Unknown]
  - Death [Fatal]
  - Cholecystectomy [Unknown]
  - Gallbladder disorder [Unknown]
  - Chronic obstructive pulmonary disease [Not Recovered/Not Resolved]
  - Schizophrenia, paranoid type [Unknown]
  - Gastrooesophageal reflux disease [Unknown]
  - Hyperlipidaemia [Unknown]
  - Urge incontinence [Unknown]
  - Knee operation [Unknown]
  - Ankle operation [Unknown]
  - Tachycardia [Unknown]
  - Hypertension [Unknown]
  - Anaemia of chronic disease [Unknown]
  - Muscle atrophy [Unknown]
  - Bipolar disorder [Unknown]
  - Atrial fibrillation [Unknown]
  - Dilatation ventricular [Unknown]
  - Pulmonary hypertension [Unknown]
  - Hypercoagulation [Unknown]
  - Hepatic lesion [Unknown]
  - Parkinson^s disease [Unknown]
  - Nausea [Unknown]
